FAERS Safety Report 17632914 (Version 1)
Quarter: 2020Q2

REPORT INFORMATION
  Report Type: Spontaneous
  Country: US (occurrence: US)
  Receive Date: 20200406
  Receipt Date: 20200406
  Transmission Date: 20200713
  Serious: No
  Sender: FDA-Public Use
  Company Number: US-SA-2020SA084207

PATIENT
  Age: 49 Year
  Sex: Male
  Weight: 112 kg

DRUGS (1)
  1. DUPIXENT [Suspect]
     Active Substance: DUPILUMAB
     Dosage: 300 MG, QOW
     Route: 058
     Dates: start: 20180801

REACTIONS (2)
  - Product dose omission [Unknown]
  - Skin infection [Unknown]

NARRATIVE: CASE EVENT DATE: 202002
